FAERS Safety Report 5460388-X (Version None)
Quarter: 2007Q3

REPORT INFORMATION
  Report Type: 
  Country: None (occurrence: None)
  Receive Date: 20070828
  Receipt Date: 20060901
  Transmission Date: 20080115
  Serious: Yes (Other)
  Sender: FDA-Public Use
  Company Number: 14729

PATIENT
  Age: 55 Year
  Sex: Female

DRUGS (16)
  1. PAMIDRONATE DISODIUM [Suspect]
     Indication: BREAST CANCER
     Dates: start: 20000501, end: 20060401
  2. ZOMETA [Concomitant]
  3. NPH ILETIN II [Concomitant]
  4. ATARAX [Concomitant]
  5. TEMAZEPAM [Concomitant]
  6. ATENOLOL [Concomitant]
  7. PROTONIX [Concomitant]
  8. DILAUDID [Concomitant]
  9. OXYCONTIN [Concomitant]
  10. KLOR-CON [Concomitant]
  11. BUMETANIDE [Concomitant]
  12. NEURONTIN [Concomitant]
  13. ZOFRAN [Concomitant]
  14. SENNA [Concomitant]
  15. LIDODERM [Concomitant]
  16. HERCEPTIN [Concomitant]

REACTIONS (1)
  - OSTEONECROSIS [None]
